FAERS Safety Report 16835796 (Version 11)
Quarter: 2020Q2

REPORT INFORMATION
  Report Type: Report from Study
  Country: US (occurrence: US)
  Receive Date: 20190920
  Receipt Date: 20200410
  Transmission Date: 20200713
  Serious: Yes (Life-Threatening, Hospitalization, Other)
  Sender: FDA-Public Use
  Company Number: US-TESARO-2019-TSO02933-US

PATIENT
  Age: 66 Year
  Sex: Female

DRUGS (8)
  1. NIRAPARIB [Suspect]
     Active Substance: NIRAPARIB
     Dosage: 300 MG, QD
     Route: 048
  2. NIRAPARIB [Suspect]
     Active Substance: NIRAPARIB
     Dosage: 100 MG, QD
     Route: 048
  3. NIRAPARIB [Suspect]
     Active Substance: NIRAPARIB
     Dosage: 300 MG PM WITH FOOD
     Route: 048
  4. NIRAPARIB [Suspect]
     Active Substance: NIRAPARIB
     Dosage: 300 MG, QD
     Route: 048
  5. NIRAPARIB [Suspect]
     Active Substance: NIRAPARIB
     Indication: OVARIAN CANCER
     Dosage: 300 MG, QD
     Route: 048
     Dates: start: 20190815
  6. NIRAPARIB [Suspect]
     Active Substance: NIRAPARIB
     Dosage: 300 MG, QD
  7. NIRAPARIB [Suspect]
     Active Substance: NIRAPARIB
     Dosage: 200 MG, QD (2 CAPS DAILY)
  8. NIRAPARIB [Suspect]
     Active Substance: NIRAPARIB
     Dosage: 300 MG, PM WITH FOOD
     Route: 048

REACTIONS (37)
  - Night sweats [Recovered/Resolved]
  - Lymphadenopathy mediastinal [Unknown]
  - Abdominal discomfort [Recovered/Resolved]
  - Dyspnoea exertional [Not Recovered/Not Resolved]
  - Blood test abnormal [Unknown]
  - Pleural effusion [Unknown]
  - Nausea [Recovered/Resolved]
  - Paranasal sinus hypersecretion [Unknown]
  - Social problem [Unknown]
  - Underdose [Unknown]
  - Hypoaesthesia [Unknown]
  - Oral pain [Not Recovered/Not Resolved]
  - Tongue disorder [Recovered/Resolved]
  - Vomiting [Recovered/Resolved]
  - Vaginal neoplasm [Not Recovered/Not Resolved]
  - Lip pain [Unknown]
  - Hypotension [Not Recovered/Not Resolved]
  - Dysgeusia [Recovered/Resolved]
  - Weight decreased [Unknown]
  - Oral mucosal blistering [Not Recovered/Not Resolved]
  - Fatigue [Recovering/Resolving]
  - Constipation [Recovered/Resolved]
  - Carbohydrate antigen 125 increased [Not Recovered/Not Resolved]
  - Therapy cessation [Unknown]
  - Product dose omission [Unknown]
  - Swollen tongue [Not Recovered/Not Resolved]
  - Hyperhidrosis [Not Recovered/Not Resolved]
  - Decreased appetite [Recovering/Resolving]
  - Asthenia [Recovering/Resolving]
  - Pneumonia [Recovered/Resolved]
  - Pulmonary mass [Unknown]
  - Feeling abnormal [Unknown]
  - Cardiac failure [Unknown]
  - Platelet count decreased [Recovering/Resolving]
  - Feeling hot [Recovered/Resolved]
  - Stomatitis [Recovered/Resolved]
  - Insomnia [Not Recovered/Not Resolved]

NARRATIVE: CASE EVENT DATE: 20190822
